FAERS Safety Report 23919647 (Version 22)
Quarter: 2025Q4

REPORT INFORMATION
  Report Type: Report from Study
  Country: CA (occurrence: CA)
  Receive Date: 20240530
  Receipt Date: 20251215
  Transmission Date: 20260118
  Serious: Yes (Hospitalization)
  Sender: PFIZER
  Company Number: CA-PFIZER INC-202400179107

PATIENT
  Age: 60 Year
  Sex: Male

DRUGS (30)
  1. ABRILADA [Suspect]
     Active Substance: ADALIMUMAB-AFZB
     Indication: Crohn^s disease
     Dosage: 1 DF (WEEK 0: 160 MG, WEEK 2: 80 MG, THEN 40 MG EVERY OTHER WEEK)
     Route: 058
     Dates: start: 20221214
  2. ABRILADA [Suspect]
     Active Substance: ADALIMUMAB-AFZB
     Dosage: 1 DF (WEEK 0: 160 MG, WEEK 2: 80 MG, THEN 40 MG EVERY OTHER WEEK)
     Route: 058
     Dates: start: 20240620
  3. ABRILADA [Suspect]
     Active Substance: ADALIMUMAB-AFZB
     Dosage: 40 MG AFTER 3 WEEKS (PRESCRIBED EVERY OTHER WEEK)
     Route: 058
     Dates: start: 20240711
  4. ABRILADA [Suspect]
     Active Substance: ADALIMUMAB-AFZB
     Dosage: 40 MG, EVERY 2 WEEKS
     Route: 058
     Dates: start: 20240723
  5. ABRILADA [Suspect]
     Active Substance: ADALIMUMAB-AFZB
     Dosage: 40 MG, EVERY 2 WEEKS
     Route: 058
     Dates: start: 20240807
  6. ABRILADA [Suspect]
     Active Substance: ADALIMUMAB-AFZB
     Dosage: 1 DF, WK0 160MG, WK2 80MG THEN 40 MG Q2 WK
     Route: 058
     Dates: start: 20240904
  7. ABRILADA [Suspect]
     Active Substance: ADALIMUMAB-AFZB
     Dosage: 40 MG, EVERY 2 WEEKS
     Route: 058
     Dates: start: 20240918
  8. ABRILADA [Suspect]
     Active Substance: ADALIMUMAB-AFZB
     Dosage: 40 MG, AFTER 2 WEEKS AND 1 DAY
     Route: 058
     Dates: start: 20241003
  9. ABRILADA [Suspect]
     Active Substance: ADALIMUMAB-AFZB
     Dosage: 40 MG, AFTER 1 WEEK 6 DAYS
     Route: 058
     Dates: start: 20241016
  10. ABRILADA [Suspect]
     Active Substance: ADALIMUMAB-AFZB
     Dosage: 1 DF, WK0 160MG, WK2 80MG THEN 40 MG Q2 WK
     Route: 058
     Dates: start: 20241114
  11. ABRILADA [Suspect]
     Active Substance: ADALIMUMAB-AFZB
     Dosage: 40 MG, (1 DF, WK0 160MG, WK2 80MG THEN 40 MG Q2 WK)
     Route: 058
     Dates: start: 20241128
  12. ABRILADA [Suspect]
     Active Substance: ADALIMUMAB-AFZB
     Dosage: 1 DF, WK0 160MG, WK2 80MG THEN 40 MG Q2 WK
     Route: 058
     Dates: start: 20241212
  13. ABRILADA [Suspect]
     Active Substance: ADALIMUMAB-AFZB
     Dosage: 40 MG, EVERY 2 WEEKS
     Route: 058
     Dates: start: 20241227
  14. ABRILADA [Suspect]
     Active Substance: ADALIMUMAB-AFZB
     Dosage: 40 MG, AFTER 2 WEEKS (EVERY 2 WEEKS)
     Route: 058
     Dates: start: 20250110
  15. ABRILADA [Suspect]
     Active Substance: ADALIMUMAB-AFZB
     Dosage: 40 MG, WK0 160MG, WK2 80MG THEN 40 MG EVERY 2 WK
     Route: 058
     Dates: start: 20250207
  16. ABRILADA [Suspect]
     Active Substance: ADALIMUMAB-AFZB
     Dosage: 40 MG, 2 WEEKS (WEEK 0 160MG, WK2 80MG THEN 40 MG EVERY 2 WEEK)
     Route: 058
     Dates: start: 20250221
  17. ABRILADA [Suspect]
     Active Substance: ADALIMUMAB-AFZB
     Dosage: 40 MG, 3 WEEKS AND 6 DAYS (WEEK 0 160MG, WK2 80MG THEN 40 MG EVERY 2 WEEK)
     Route: 058
     Dates: start: 20250320
  18. ABRILADA [Suspect]
     Active Substance: ADALIMUMAB-AFZB
     Dosage: 40 MG, AFTER 2 WEEKS (1 DF, WK0 160MG, WK2 80MG THEN 40 MG Q2 WK)
     Route: 058
     Dates: start: 20250404
  19. ABRILADA [Suspect]
     Active Substance: ADALIMUMAB-AFZB
     Dosage: 40 MG, 1 WEEK 6 DAYS(1 DF,WK0 160MG, WK2 80MG THEN 40 MG Q2 WK )
     Route: 058
     Dates: start: 20250417
  20. ABRILADA [Suspect]
     Active Substance: ADALIMUMAB-AFZB
     Dosage: 1 DF, WK0 160MG, WK2 80MG THEN 40 MG Q2 WK
     Route: 058
     Dates: start: 20250516
  21. ABRILADA [Suspect]
     Active Substance: ADALIMUMAB-AFZB
     Dosage: 40 MG, EVERY 2 WEEKS
     Route: 058
     Dates: start: 20250530
  22. ABRILADA [Suspect]
     Active Substance: ADALIMUMAB-AFZB
     Dosage: 40 MG, EVERY 2 WEEKS (1 DF, WK0 160MG, WK2 80MG THEN 40 MG Q 2 WK)
     Route: 058
     Dates: start: 20250613
  23. ABRILADA [Suspect]
     Active Substance: ADALIMUMAB-AFZB
     Dosage: 40 MG, EVERY 2 WEEKS (1DF, WK0 160MG, WK2 80MG THEN 40 MG Q2 WK)
     Route: 058
     Dates: start: 20250801
  24. ABRILADA [Suspect]
     Active Substance: ADALIMUMAB-AFZB
     Dosage: 40 MG, 2 WEEKS, (1DF,WK0 160MG, WK2 80MG THEN 40 MG Q2 WK)
     Route: 058
     Dates: start: 20250815
  25. ABRILADA [Suspect]
     Active Substance: ADALIMUMAB-AFZB
     Dosage: 40 MG, EVERY 2 WEEKS
     Route: 058
     Dates: start: 20250829
  26. ABRILADA [Suspect]
     Active Substance: ADALIMUMAB-AFZB
     Dosage: 40 MG, EVERY 2 WEEKS (1DF, WK0 160MG, WK2 80MG THEN 40 MG Q2 WK )
     Route: 058
     Dates: start: 20250915
  27. ABRILADA [Suspect]
     Active Substance: ADALIMUMAB-AFZB
     Dosage: 40 MG, AFTER 1 WEEK AND 4 DAYS ((1DF, WK0 160MG, WK2 80MG THEN 40 MG Q2 WK)
     Route: 058
     Dates: start: 20250926
  28. ABRILADA [Suspect]
     Active Substance: ADALIMUMAB-AFZB
     Dosage: 40 MG, (1 DF, WK0 160MG, WK2 80MG THEN 40 MG Q2 WK )
     Route: 058
     Dates: start: 20251010
  29. ABRILADA [Suspect]
     Active Substance: ADALIMUMAB-AFZB
     Dosage: 40 MG, WK0 160MG, WK2 80MG THEN 40 MG Q2 WK
     Route: 058
     Dates: start: 20251121
  30. ABRILADA [Suspect]
     Active Substance: ADALIMUMAB-AFZB
     Dosage: 40 MG, EVERY 2 WEEKS, (40 MG, WK0 160MG, WK2 80MG THEN 40 MG Q2 WK)
     Route: 058
     Dates: start: 20251205

REACTIONS (6)
  - Arteriosclerosis [Unknown]
  - Hypertension [Unknown]
  - Injection site pain [Unknown]
  - Confusional state [Unknown]
  - Condition aggravated [Not Recovered/Not Resolved]
  - Arthralgia [Recovered/Resolved]

NARRATIVE: CASE EVENT DATE: 20240620
